FAERS Safety Report 9797322 (Version 1)
Quarter: 2014Q1

REPORT INFORMATION
  Report Type: Spontaneous
  Country: US (occurrence: US)
  Receive Date: 20140106
  Receipt Date: 20140106
  Transmission Date: 20141002
  Serious: Yes (Hospitalization)
  Sender: FDA-Public Use
  Company Number: US-BIOGENIDEC-2013BI124507

PATIENT
  Sex: Female
  Weight: 101 kg

DRUGS (3)
  1. TYSABRI [Suspect]
     Indication: MULTIPLE SCLEROSIS
     Route: 042
     Dates: start: 20071211, end: 20131120
  2. BACLOFEN [Concomitant]
     Route: 048
  3. GABAPENTIN [Concomitant]
     Route: 048

REACTIONS (1)
  - Multiple sclerosis relapse [Recovered/Resolved]
